FAERS Safety Report 4340706-6 (Version None)
Quarter: 2004Q2

REPORT INFORMATION
  Report Type: 
  Country: None (occurrence: None)
  Receive Date: 20040414
  Receipt Date: 20040406
  Transmission Date: 20050107
  Serious: Yes (Hospitalization)
  Sender: FDA-Public Use
  Company Number: ENTC2004-0046

PATIENT
  Age: 57 Year
  Sex: Male

DRUGS (5)
  1. STALEVO 50 [Suspect]
     Indication: PARKINSON'S DISEASE
     Dosage: 100 MG 3 TIMES A DAY, ORAL
     Route: 048
     Dates: start: 20030825, end: 20030831
  2. SEROQUEL (UNKNOWN) [Concomitant]
  3. KLONOPIN (UNKNOWN) [Concomitant]
  4. RESTORIL (UNKNOWN) [Concomitant]
  5. ARTANE [Concomitant]

REACTIONS (1)
  - HYPOGLYCAEMIA [None]
